FAERS Safety Report 19485540 (Version 1)
Quarter: 2021Q3

REPORT INFORMATION
  Report Type: Spontaneous
  Country: US (occurrence: US)
  Receive Date: 20210702
  Receipt Date: 20210702
  Transmission Date: 20211014
  Serious: No
  Sender: FDA-Public Use
  Company Number: US-TEVA-2021-US-1924696

PATIENT
  Age: 20 Year
  Sex: Female

DRUGS (15)
  1. CYMBALTA [Concomitant]
     Active Substance: DULOXETINE HYDROCHLORIDE
  2. CARNITOR [Concomitant]
     Active Substance: LEVOCARNITINE
  3. KLONOPIN [Concomitant]
     Active Substance: CLONAZEPAM
  4. FOCALIN XL 40MG [Concomitant]
  5. MIRENA [Concomitant]
     Active Substance: LEVONORGESTREL
  6. FOCALIN 5MG [Concomitant]
  7. TOPAMAX [Concomitant]
     Active Substance: TOPIRAMATE
  8. AUSTEDO [Suspect]
     Active Substance: DEUTETRABENAZINE
     Indication: TOURETTE^S DISORDER
     Dosage: 15 MILLIGRAM DAILY; 6MG AND 9MG TABLET
     Dates: start: 202007
  9. AUSTEDO [Suspect]
     Active Substance: DEUTETRABENAZINE
     Indication: INTENTIONAL SELF-INJURY
  10. EQUETRO [Concomitant]
     Active Substance: CARBAMAZEPINE
  11. LUNESTA [Concomitant]
     Active Substance: ESZOPICLONE
  12. MINIPRESS [Concomitant]
     Active Substance: PRAZOSIN HYDROCHLORIDE
  13. SINGULAIR [Concomitant]
     Active Substance: MONTELUKAST SODIUM
  14. TRAZODONE [Concomitant]
     Active Substance: TRAZODONE HYDROCHLORIDE
  15. BIOTIN [Concomitant]
     Active Substance: BIOTIN

REACTIONS (2)
  - Off label use [Unknown]
  - Tic [Recovered/Resolved]

NARRATIVE: CASE EVENT DATE: 202007
